FAERS Safety Report 4613686-3 (Version None)
Quarter: 2005Q1

REPORT INFORMATION
  Report Type: 
  Country: None (occurrence: None)
  Receive Date: 20050315
  Receipt Date: 20040213
  Transmission Date: 20050727
  Serious: No
  Sender: FDA-Public Use
  Company Number: 7417

PATIENT
  Age: 69 Year
  Sex: Female

DRUGS (5)
  1. CARBOPLATIN [Suspect]
     Indication: OVARIAN CANCER
     Dosage: 550 MG IV
     Route: 042
     Dates: start: 20040130, end: 20040130
  2. DOMPERIDONE [Concomitant]
  3. RANITIDINE [Concomitant]
  4. DEXAMETHASONE [Concomitant]
  5. SPIRONOLACTONE [Concomitant]

REACTIONS (7)
  - ABDOMINAL PAIN [None]
  - CHEST DISCOMFORT [None]
  - FLUSHING [None]
  - GASTROINTESTINAL DISORDER [None]
  - NAUSEA [None]
  - PRURITUS [None]
  - RASH GENERALISED [None]
